FAERS Safety Report 8861436 (Version 1)
Quarter: 2012Q4

REPORT INFORMATION
  Report Type: Spontaneous
  Country: US (occurrence: None)
  Receive Date: 20121025
  Receipt Date: 20121025
  Transmission Date: 20130627
  Serious: Yes (Life-Threatening)
  Sender: FDA-Public Use
  Company Number: None

PATIENT
  Age: 63 Year
  Sex: Male

DRUGS (1)
  1. ZYVOX [Suspect]
     Dosage: 600 mg IV every 12 hours
     Route: 042
     Dates: start: 20120414, end: 20120501

REACTIONS (1)
  - Thrombocytopenia [None]
